FAERS Safety Report 9415735 (Version 2)
Quarter: 2013Q3

REPORT INFORMATION
  Report Type: Spontaneous
  Country: GB (occurrence: GB)
  Receive Date: 20130723
  Receipt Date: 20130731
  Transmission Date: 20140515
  Serious: Yes (Hospitalization, Other)
  Sender: FDA-Public Use
  Company Number: GB-PFIZER INC-2013211020

PATIENT
  Age: 71 Year
  Sex: Female

DRUGS (9)
  1. OMEPRAZOLE [Suspect]
     Indication: PRODUCT USED FOR UNKNOWN INDICATION
     Dosage: 20 MG, UNK
     Route: 065
     Dates: start: 2007
  2. RAMIPRIL [Suspect]
     Indication: PRODUCT USED FOR UNKNOWN INDICATION
     Dosage: 10 MG, UNK
     Route: 065
  3. ASPIRIN [Concomitant]
     Dosage: 75 MG, UNK
  4. BISOPROLOL [Concomitant]
     Dosage: 10 MG, UNK
  5. FLURAZEPAM [Concomitant]
     Dosage: 30 MG, UNK
  6. DOSULEPIN [Concomitant]
     Dosage: 150 MG, UNK
  7. DOXAZOSIN [Concomitant]
     Dosage: 4 MG, UNK
  8. PRAVASTATIN [Concomitant]
     Dosage: 40 MG, UNK
  9. ROPINIROLE [Concomitant]
     Dosage: 150 MCG, UNK

REACTIONS (5)
  - Hypocalcaemia [Recovered/Resolved]
  - Hypokalaemia [Recovered/Resolved]
  - Hypomagnesaemia [Recovered/Resolved]
  - Hyperkalaemia [Recovered/Resolved]
  - Paraesthesia [Unknown]
